FAERS Safety Report 6733458-3 (Version None)
Quarter: 2010Q2

REPORT INFORMATION
  Report Type: 
  Country: None (occurrence: None)
  Receive Date: 20100520
  Receipt Date: 20100517
  Transmission Date: 20101027
  Serious: Yes (Death, Other)
  Sender: FDA-Public Use
  Company Number: US-TEVA-234915USA

PATIENT
  Age: 66 Year
  Sex: Female

DRUGS (2)
  1. CYCLOSPORINE [Suspect]
     Indication: APLASIA PURE RED CELL
  2. PREDNISONE TAB [Suspect]
     Indication: APLASIA PURE RED CELL

REACTIONS (2)
  - ACUTE MYELOID LEUKAEMIA [None]
  - HEPATIC FAILURE [None]
